FAERS Safety Report 5139809-8 (Version None)
Quarter: 2006Q4

REPORT INFORMATION
  Report Type: 
  Country: None (occurrence: None)
  Receive Date: 20060905
  Receipt Date: 20060427
  Transmission Date: 20070319
  Serious: No
  Sender: FDA-Public Use
  Company Number: 35008

PATIENT
  Sex: Male

DRUGS (11)
  1. NEVANAC [Suspect]
     Indication: PROPHYLAXIS
  2. BSS [Concomitant]
  3. MIOTIC [Concomitant]
  4. VIGAMOX [Concomitant]
  5. ECONOPRED PLUS [Concomitant]
  6. TETRACAINE 0.5% STERI-UNITS [Concomitant]
  7. NEXIUM [Concomitant]
  8. ISOSORBIDE [Concomitant]
  9. METOPROLOL SUCCINATE [Concomitant]
  10. REQUIP [Concomitant]
  11. NORVASC [Concomitant]

REACTIONS (1)
  - ANTERIOR CHAMBER INFLAMMATION [None]
